FAERS Safety Report 12437917 (Version 3)
Quarter: 2016Q3

REPORT INFORMATION
  Report Type: Spontaneous
  Country: KR (occurrence: KR)
  Receive Date: 20160606
  Receipt Date: 20160722
  Transmission Date: 20161109
  Serious: Yes (Other)
  Sender: FDA-Public Use
  Company Number: KR-009507513-1602KOR000370

PATIENT
  Age: 83 Year
  Sex: Male
  Weight: 87 kg

DRUGS (10)
  1. ATACAND [Concomitant]
     Active Substance: CANDESARTAN CILEXETIL
     Indication: ESSENTIAL HYPERTENSION
     Dosage: 16 MG, QD
     Route: 048
     Dates: start: 20090318
  2. MUTERIN [Concomitant]
     Indication: PROPHYLAXIS
     Dosage: 200 MG, TWICE A DAY
     Route: 048
     Dates: start: 20091125
  3. TROMVIX [Concomitant]
     Indication: THROMBOSIS PROPHYLAXIS
     Dosage: 1 TABLET, ONCE A DAY
     Route: 048
     Dates: start: 20070612
  4. ISOTRIL [Concomitant]
     Indication: CORONARY ARTERY DISEASE
     Dosage: 60 MG, ONCE A DAY
     Route: 048
     Dates: start: 20110818
  5. ATOZET [Suspect]
     Active Substance: ATORVASTATIN CALCIUM\EZETIMIBE
     Indication: HYPERCHOLESTEROLAEMIA
     Dosage: 1 TABLET, ONCE A DAY
     Route: 048
     Dates: start: 20150930
  6. DILATREND [Concomitant]
     Active Substance: CARVEDILOL
     Indication: ESSENTIAL HYPERTENSION
     Dosage: 12.5 MG, TWICE DAILY
     Route: 048
     Dates: start: 20061002
  7. ACTOS [Concomitant]
     Active Substance: PIOGLITAZONE HYDROCHLORIDE
     Indication: TYPE 2 DIABETES MELLITUS
     Dosage: 15 MG, ONCE A DAY
     Route: 048
     Dates: start: 20120516
  8. DIABEX [Concomitant]
     Active Substance: METFORMIN HYDROCHLORIDE
     Indication: TYPE 2 DIABETES MELLITUS
     Dosage: 500 MG, ONCE A DAY
     Route: 048
     Dates: start: 20120516
  9. VASTINAN MR [Concomitant]
     Indication: CORONARY ARTERY DISEASE
     Dosage: 35 MG, TWICE A DAY
     Route: 048
     Dates: start: 20080910
  10. LASIX [Concomitant]
     Active Substance: FUROSEMIDE
     Indication: PROPHYLAXIS
     Dosage: 20 MG, ONCE A DAY
     Route: 048
     Dates: start: 20121112

REACTIONS (6)
  - Haemoglobin decreased [Recovering/Resolving]
  - Duodenitis [Recovered/Resolved]
  - Gastric polyps [Recovered/Resolved]
  - Duodenal polyp [Recovered/Resolved]
  - Chronic gastritis [Recovered/Resolved]
  - Dyspnoea exertional [Recovered/Resolved]

NARRATIVE: CASE EVENT DATE: 201601
